FAERS Safety Report 8349642-1 (Version None)
Quarter: 2012Q2

REPORT INFORMATION
  Report Type: 
  Country: None (occurrence: None)
  Receive Date: 20120510
  Receipt Date: 20120507
  Transmission Date: 20120825
  Serious: Yes (Death, Other)
  Sender: FDA-Public Use
  Company Number: US-PFIZER INC-2011303287

PATIENT
  Age: 82 Year
  Sex: Male

DRUGS (1)
  1. RAPAMUNE [Suspect]
     Indication: HEART TRANSPLANT
     Dosage: EVERY 4 HOURS INSTEAD OF EVERY 48HOURS FOR 3 WEEKS
     Route: 048
     Dates: start: 20111101

REACTIONS (4)
  - COGNITIVE DISORDER [None]
  - ACCIDENTAL OVERDOSE [None]
  - TOXIC ENCEPHALOPATHY [None]
  - DECREASED ACTIVITY [None]
